FAERS Safety Report 10029091 (Version 1)
Quarter: 2014Q1

REPORT INFORMATION
  Report Type: Spontaneous
  Country: CH (occurrence: CH)
  Receive Date: 20140321
  Receipt Date: 20140321
  Transmission Date: 20141002
  Serious: Yes (Other)
  Sender: FDA-Public Use
  Company Number: ALCN2014CH001734

PATIENT
  Age: 32 Year
  Sex: Female

DRUGS (1)
  1. CIPROXIN HC [Suspect]
     Indication: OTITIS EXTERNA BACTERIAL
     Dosage: 3 GTT, BID
     Route: 001
     Dates: start: 20140203, end: 20140205

REACTIONS (2)
  - Abortion spontaneous [Recovered/Resolved]
  - Maternal exposure during pregnancy [Recovered/Resolved]
